FAERS Safety Report 17786165 (Version 1)
Quarter: 2020Q2

REPORT INFORMATION
  Report Type: Report from Study
  Country: ES (occurrence: ES)
  Receive Date: 20200514
  Receipt Date: 20200514
  Transmission Date: 20200714
  Serious: Yes (Life-Threatening, Hospitalization)
  Sender: FDA-Public Use
  Company Number: ES-PFIZER INC-2020187952

PATIENT
  Age: 73 Year
  Sex: Male

DRUGS (6)
  1. SINTROM [Suspect]
     Active Substance: ACENOCOUMAROL
     Indication: CARDIAC FLUTTER
     Dosage: UNK
     Route: 048
     Dates: start: 201406, end: 20170817
  2. ADIRO [Suspect]
     Active Substance: ASPIRIN
     Dosage: 100 MG, 1X/DAY
     Route: 048
     Dates: start: 201406, end: 20170819
  3. PREDNISONE. [Suspect]
     Active Substance: PREDNISONE
     Dosage: 2.5 MG, 1X/DAY
     Route: 048
  4. RIFAXIMIN. [Concomitant]
     Active Substance: RIFAXIMIN
     Dosage: 200 MG, 1X/DAY
     Route: 048
     Dates: start: 201502, end: 20170817
  5. SERTRALINE [Suspect]
     Active Substance: SERTRALINE HYDROCHLORIDE
     Dosage: 50 MG, 1X/DAY
     Route: 048
     Dates: start: 201407, end: 20170819
  6. BISOPROLOL [Concomitant]
     Active Substance: BISOPROLOL
     Indication: CARDIAC FLUTTER
     Dosage: 10 MG, 1X/DAY
     Route: 048
     Dates: start: 201406, end: 20170819

REACTIONS (1)
  - Lower gastrointestinal haemorrhage [Recovered/Resolved]

NARRATIVE: CASE EVENT DATE: 20170816
